FAERS Safety Report 5800363-6 (Version None)
Quarter: 2008Q3

REPORT INFORMATION
  Report Type: 
  Country: None (occurrence: None)
  Receive Date: 20080703
  Receipt Date: 20080701
  Transmission Date: 20090109
  Serious: Yes (Death, Other)
  Sender: FDA-Public Use
  Company Number: IT-BAYER-200820979GPV

PATIENT

DRUGS (6)
  1. FLUDARABINE PHOSPHATE [Suspect]
     Indication: STEM CELL TRANSPLANT
     Route: 065
  2. THIOTEPA [Suspect]
     Indication: STEM CELL TRANSPLANT
  3. RABBIT ANTITHYMOCYTE GLOBULIN [Suspect]
     Indication: STEM CELL TRANSPLANT
  4. LIPOSOMAL AMPHOTERICINE-B [Concomitant]
     Indication: PROPHYLAXIS
     Route: 065
  5. GANCICLOVIR [Concomitant]
     Indication: PROPHYLAXIS
     Route: 065
  6. FOSCARNET [Concomitant]
     Indication: PROPHYLAXIS
     Route: 065

REACTIONS (14)
  - ACUTE GRAFT VERSUS HOST DISEASE [None]
  - ADENOVIRUS INFECTION [None]
  - ALPHA HAEMOLYTIC STREPTOCOCCAL INFECTION [None]
  - ASPERGILLOSIS [None]
  - CANDIDIASIS [None]
  - CHRONIC GRAFT VERSUS HOST DISEASE [None]
  - CYTOMEGALOVIRUS INFECTION [None]
  - EPSTEIN-BARR VIRUS INFECTION [None]
  - ESCHERICHIA INFECTION [None]
  - HERPES VIRUS INFECTION [None]
  - INTERSTITIAL LUNG DISEASE [None]
  - MULTI-ORGAN FAILURE [None]
  - NEUROTOXICITY [None]
  - PSEUDOMONAS INFECTION [None]
